FAERS Safety Report 7322796-1 (Version None)
Quarter: 2011Q1

REPORT INFORMATION
  Report Type: 
  Country: None (occurrence: None)
  Receive Date: 20110216
  Receipt Date: 20110203
  Transmission Date: 20110831
  Serious: Yes (Other)
  Sender: FDA-Public Use
  Company Number: 003710

PATIENT
  Age: 72 Year
  Sex: Male

DRUGS (5)
  1. LEVOFLOXACIN [Concomitant]
  2. ADONA (CARBAZOCHROME SODIUM SULFONATE) [Concomitant]
  3. CARNACULIN (PANCREAS EXTRACT) [Concomitant]
  4. MACUGEN [Suspect]
     Indication: CHOROIDAL NEOVASCULARISATION
     Dosage: 0.3MG, INTRAOCULAR
     Route: 031
     Dates: start: 20091218
  5. MACUGEN [Suspect]
     Indication: MACULAR DEGENERATION
     Dosage: 0.3MG, INTRAOCULAR
     Route: 031
     Dates: start: 20091218

REACTIONS (2)
  - DRUG EFFECT DECREASED [None]
  - PROSTATIC SPECIFIC ANTIGEN INCREASED [None]
